FAERS Safety Report 10876974 (Version 1)
Quarter: 2015Q1

REPORT INFORMATION
  Report Type: Spontaneous
  Country: US (occurrence: US)
  Receive Date: 20150302
  Receipt Date: 20150302
  Transmission Date: 20150721
  Serious: Yes (Other)
  Sender: FDA-Public Use
  Company Number: US-UCBSA-2014008826

PATIENT
  Sex: Female

DRUGS (1)
  1. KEPPRA XR [Suspect]
     Active Substance: LEVETIRACETAM
     Indication: SEIZURE
     Dosage: 500 MG 2 TABS DAILY

REACTIONS (4)
  - Small cell lung cancer [Not Recovered/Not Resolved]
  - Emphysema [Not Recovered/Not Resolved]
  - Memory impairment [Unknown]
  - Macular degeneration [Not Recovered/Not Resolved]
